FAERS Safety Report 18542971 (Version 5)
Quarter: 2020Q4

REPORT INFORMATION
  Report Type: Report from Study
  Country: JP (occurrence: JP)
  Receive Date: 20201125
  Receipt Date: 20201222
  Transmission Date: 20210114
  Serious: Yes (Hospitalization)
  Sender: FDA-Public Use
  Company Number: JP-ROCHE-2713728

PATIENT
  Age: 71 Year
  Sex: Female
  Weight: 44 kg

DRUGS (29)
  1. FENTANYL. [Concomitant]
     Active Substance: FENTANYL
     Dates: start: 20201117, end: 20201117
  2. XYLOCAINE [Concomitant]
     Active Substance: LIDOCAINE HYDROCHLORIDE
     Dates: start: 20201117, end: 20201117
  3. PRIMPERAN [Concomitant]
     Active Substance: METOCLOPRAMIDE HYDROCHLORIDE
     Indication: DYSPEPSIA
     Dates: start: 20201116
  4. NEXIUM [Concomitant]
     Active Substance: ESOMEPRAZOLE MAGNESIUM
     Indication: GASTROOESOPHAGEAL REFLUX DISEASE
     Dates: start: 20200619
  5. MOSAPRIDE [Concomitant]
     Active Substance: MOSAPRIDE
     Indication: DYSPEPSIA
     Dates: start: 20200619
  6. PROPETO [Concomitant]
     Active Substance: PETROLATUM
     Indication: ANGULAR CHEILITIS
     Dates: start: 20200707
  7. MAGNESIUM OXIDE. [Concomitant]
     Active Substance: MAGNESIUM OXIDE
     Indication: CONSTIPATION
     Dates: start: 20200817
  8. FLUMAZENIL. [Concomitant]
     Active Substance: FLUMAZENIL
     Dates: start: 20200619, end: 20200619
  9. OBINUTUZUMAB. [Suspect]
     Active Substance: OBINUTUZUMAB
     Indication: B-CELL LYMPHOMA
     Dosage: DATE OF MOST RECENT DOSE OF OBINUTUZUMAB PRIOR TO AE/SAE ONSET 24/AUG/2020: 1000 MG
     Route: 042
     Dates: start: 20200311
  10. XYLOCAINE [Concomitant]
     Active Substance: LIDOCAINE HYDROCHLORIDE
     Dates: start: 20201117, end: 20201117
  11. FELBINAC [Concomitant]
     Active Substance: FELBINAC
     Indication: BONE CONTUSION
     Dates: start: 20200909, end: 20200930
  12. PYRIDOXAL [Concomitant]
     Active Substance: PYRIDOXAL
     Indication: ANGULAR CHEILITIS
     Dates: start: 20201016
  13. FLUMAZENIL. [Concomitant]
     Active Substance: FLUMAZENIL
     Dates: start: 20201117, end: 20201117
  14. DAIPHEN [Concomitant]
     Active Substance: SULFAMETHOXAZOLE\TRIMETHOPRIM
     Indication: INFECTION PROPHYLAXIS
     Dates: start: 20200312, end: 20201019
  15. PRIMPERAN [Concomitant]
     Active Substance: METOCLOPRAMIDE HYDROCHLORIDE
     Indication: NAUSEA
     Dates: start: 20200316, end: 20200912
  16. HYALEIN [Concomitant]
     Active Substance: HYALURONATE SODIUM
     Indication: DRY EYE
  17. ATOLANT [Concomitant]
     Indication: ANGULAR CHEILITIS
     Dates: start: 20200707, end: 20201108
  18. CARBOCISTEINE [Concomitant]
     Active Substance: CARBOCYSTEINE
     Indication: ATELECTASIS
     Dates: start: 20200817
  19. DORMICUM [Concomitant]
     Dates: start: 20200619, end: 20200619
  20. XYLOCAINE [Concomitant]
     Active Substance: LIDOCAINE HYDROCHLORIDE
     Dates: start: 20201117, end: 20201117
  21. DAIPHEN [Concomitant]
     Active Substance: SULFAMETHOXAZOLE\TRIMETHOPRIM
     Dates: start: 20201111, end: 20201116
  22. VICCLOX [Concomitant]
     Active Substance: ACYCLOVIR SODIUM
     Indication: INFECTION PROPHYLAXIS
     Dates: start: 20200311, end: 20201019
  23. BENDAMUSTINE [Suspect]
     Active Substance: BENDAMUSTINE
     Indication: B-CELL LYMPHOMA
     Dosage: DATE OF MOST RECENT DOSE OF OBINUTUZUMAB PRIOR TO AE/SAE ONSET 25/AUG/2020
     Route: 042
     Dates: start: 20200312
  24. DORMICUM [Concomitant]
     Dates: start: 20201117, end: 20201117
  25. VICCLOX [Concomitant]
     Active Substance: ACYCLOVIR SODIUM
     Dates: start: 20201111, end: 20201116
  26. ISOTONIC SODIUM CHLORIDE SOLUTION [Concomitant]
     Active Substance: SODIUM CHLORIDE
     Dates: start: 20201117, end: 20201117
  27. FLORID [Concomitant]
     Active Substance: MICONAZOLE
     Indication: MUCOSAL INFECTION
     Dosage: ORAL GEL
     Route: 048
     Dates: start: 20200707, end: 20200727
  28. FLORID [Concomitant]
     Active Substance: MICONAZOLE
     Dates: start: 20201016, end: 20201108
  29. NOVORAPID [Concomitant]
     Active Substance: INSULIN ASPART
     Indication: DIABETES MELLITUS MANAGEMENT
     Dates: start: 20201117, end: 20201117

REACTIONS (1)
  - Obliterative bronchiolitis [Recovering/Resolving]

NARRATIVE: CASE EVENT DATE: 20201027
